FAERS Safety Report 9542041 (Version 2)
Quarter: 2013Q4

REPORT INFORMATION
  Report Type: Spontaneous
  Country: FR (occurrence: FR)
  Receive Date: 20130923
  Receipt Date: 20131106
  Transmission Date: 20140711
  Serious: Yes (Other)
  Sender: FDA-Public Use
  Company Number: FR-JNJFOC-20130910016

PATIENT
  Age: 14 Year
  Sex: Male

DRUGS (3)
  1. REMICADE [Suspect]
     Indication: CROHN^S DISEASE
     Route: 042
  2. REMICADE [Suspect]
     Indication: CROHN^S DISEASE
     Dosage: 16TH CYCLE OF INFLIXIMAB
     Route: 042
     Dates: start: 20130820
  3. VENOFER [Concomitant]
     Route: 065

REACTIONS (6)
  - Respiratory disorder [Recovered/Resolved]
  - Hypoxia [Recovered/Resolved]
  - Urinary incontinence [Recovered/Resolved]
  - Infusion related reaction [Recovered/Resolved]
  - Rash [Recovered/Resolved]
  - Drug specific antibody present [Unknown]
